FAERS Safety Report 19886716 (Version 2)
Quarter: 2021Q4

REPORT INFORMATION
  Report Type: Spontaneous
  Country: US (occurrence: None)
  Receive Date: 20210928
  Receipt Date: 20211130
  Transmission Date: 20220303
  Serious: Yes (Other)
  Sender: FDA-Public Use
  Company Number: US-ROCHE-2912983

PATIENT
  Age: 48 Year
  Sex: Female
  Weight: 79.450 kg

DRUGS (2)
  1. OCREVUS [Suspect]
     Active Substance: OCRELIZUMAB
     Indication: Relapsing-remitting multiple sclerosis
     Dosage: YES
     Route: 042
     Dates: start: 2017
  2. COVID-19 VACCINE NOS [Suspect]
     Active Substance: COVID-19 VACCINE NOS
     Indication: Product used for unknown indication
     Route: 065
     Dates: end: 20210201

REACTIONS (9)
  - COVID-19 [Unknown]
  - Eye pain [Unknown]
  - COVID-19 pneumonia [Unknown]
  - Headache [Unknown]
  - Muscle fatigue [Unknown]
  - Lethargy [Unknown]
  - Muscular weakness [Unknown]
  - SARS-CoV-2 antibody test negative [Not Recovered/Not Resolved]
  - Product dose omission issue [Unknown]

NARRATIVE: CASE EVENT DATE: 20210827
